FAERS Safety Report 6582480-9 (Version None)
Quarter: 2010Q1

REPORT INFORMATION
  Report Type: 
  Country: None (occurrence: None)
  Receive Date: 20100216
  Receipt Date: 20100208
  Transmission Date: 20100710
  Serious: Yes (Other)
  Sender: FDA-Public Use
  Company Number: PHHY2010BR07373

PATIENT
  Sex: Male

DRUGS (8)
  1. EXELON [Suspect]
     Dosage: 6 MG, BID
     Route: 048
     Dates: start: 20100205
  2. EXELON [Suspect]
     Dosage: 1.5 MG, TID
     Route: 048
     Dates: start: 20100205
  3. EXELON [Suspect]
     Dosage: 3 MG, BID
     Route: 048
     Dates: start: 20100205
  4. ANGIPRESS [Concomitant]
     Indication: HYPERTENSION
     Dosage: 1 DF, QD
     Route: 048
  5. NAPRIX [Concomitant]
     Indication: HYPERTENSION
     Dosage: 5 MG, QD
     Route: 048
  6. ZOLOFT [Concomitant]
     Indication: DEPRESSION
     Dosage: 50 MG, QD
     Route: 048
  7. CALTREN [Concomitant]
     Indication: HYPERTENSION
     Dosage: 10 MG, QD
     Route: 048
  8. RIVOTRIL [Concomitant]
     Dosage: 0.5 MG, QD
     Route: 048

REACTIONS (4)
  - DIZZINESS [None]
  - HYPERSENSITIVITY [None]
  - HYPERTENSION [None]
  - NAUSEA [None]
